FAERS Safety Report 17257294 (Version 1)
Quarter: 2020Q1

REPORT INFORMATION
  Report Type: Spontaneous
  Country: US (occurrence: US)
  Receive Date: 20200110
  Receipt Date: 20200110
  Transmission Date: 20200409
  Serious: Yes (Other)
  Sender: FDA-Public Use
  Company Number: US-GLAXOSMITHKLINE-US2020004476

PATIENT
  Age: 62 Year
  Sex: Male

DRUGS (1)
  1. THERAFLU DAYTIME SEVERE COLD AND COUGH [Suspect]
     Active Substance: ACETAMINOPHEN\DEXTROMETHORPHAN HYDROBROMIDE\PHENYLEPHRINE HYDROCHLORIDE
     Indication: INFLUENZA
     Dosage: UNK
     Dates: start: 20200106, end: 20200106

REACTIONS (7)
  - Hyperhidrosis [Unknown]
  - Concussion [Unknown]
  - Vomiting [Not Recovered/Not Resolved]
  - Oral disorder [Unknown]
  - Product complaint [Unknown]
  - Loss of consciousness [Unknown]
  - Dysgeusia [Unknown]

NARRATIVE: CASE EVENT DATE: 20200106
